FAERS Safety Report 7475934-4 (Version None)
Quarter: 2011Q2

REPORT INFORMATION
  Report Type: 
  Country: None (occurrence: None)
  Receive Date: 20110512
  Receipt Date: 20110509
  Transmission Date: 20111010
  Serious: Yes (Hospitalization)
  Sender: FDA-Public Use
  Company Number: PHHO2011FR08080

PATIENT
  Sex: Male

DRUGS (15)
  1. CELLCEPT [Suspect]
     Indication: RENAL TRANSPLANT
     Dosage: 2000 MG, UNK
     Route: 048
     Dates: start: 20100601
  2. SANDIMMUNE [Suspect]
     Indication: RENAL TRANSPLANT
     Dosage: 6 MG, UNK
     Route: 048
     Dates: start: 20100701
  3. LASIX [Concomitant]
  4. LYRICA [Suspect]
  5. CACIT [Concomitant]
  6. TEMERIT [Concomitant]
  7. MODAMIDE [Concomitant]
  8. PREDNISONE [Suspect]
     Indication: RENAL TRANSPLANT
     Dosage: 5 MG, UNK
     Route: 048
     Dates: start: 20100701
  9. VANCOMYCIN [Suspect]
  10. TAMSULOSIN HCL [Concomitant]
  11. DIFFU K [Concomitant]
  12. AUGMENTIN [Concomitant]
  13. PANTOPRAZOLE [Concomitant]
  14. PHOSPHORUS [Concomitant]
  15. BACTRIM [Concomitant]

REACTIONS (5)
  - ENDOCARDITIS STAPHYLOCOCCAL [None]
  - STREPTOCOCCAL SEPSIS [None]
  - STAPHYLOCOCCAL SEPSIS [None]
  - SYSTEMIC INFLAMMATORY RESPONSE SYNDROME [None]
  - NEUROTOXICITY [None]
